FAERS Safety Report 4801104-1 (Version None)
Quarter: 2005Q4

REPORT INFORMATION
  Report Type: 
  Country: None (occurrence: None)
  Receive Date: 20051011
  Receipt Date: 20051007
  Transmission Date: 20060501
  Serious: Yes (Hospitalization)
  Sender: FDA-Public Use
  Company Number: TCI2005A04108

PATIENT
  Age: 78 Year
  Sex: Male

DRUGS (4)
  1. LEUPROLIDE ACETATE [Suspect]
     Indication: PROSTATE CANCER
     Dosage: 3.75 MG (3.75 MG, 1 IN 28 D) SUBCUTANEOUS
     Route: 058
     Dates: start: 20020101
  2. PRAVASTATIN  (PRAVASTATIN) (TABLETS) [Concomitant]
  3. KREMEZIN (CHARCOAL, ACTIVATED) (FINE GRANULES) [Concomitant]
  4. ALLOPURINOL [Concomitant]

REACTIONS (7)
  - ANOREXIA [None]
  - BLOOD PH DECREASED [None]
  - DEHYDRATION [None]
  - HYPERHIDROSIS [None]
  - MYALGIA [None]
  - RENAL FAILURE ACUTE [None]
  - SWEAT GLAND DISORDER [None]
